FAERS Safety Report 6368574-1 (Version None)
Quarter: 2009Q3

REPORT INFORMATION
  Report Type: 
  Country: None (occurrence: None)
  Receive Date: 20090922
  Receipt Date: 20000303
  Transmission Date: 20100115
  Serious: No
  Sender: FDA-Public Use
  Company Number: US-BRISTOL-MYERS SQUIBB COMPANY-14529986

PATIENT
  Sex: Female

DRUGS (2)
  1. ABILIFY [Suspect]
  2. BUSPAR [Suspect]

REACTIONS (1)
  - SUICIDAL IDEATION [None]
